FAERS Safety Report 5146012-4 (Version None)
Quarter: 2006Q4

REPORT INFORMATION
  Report Type: 
  Country: None (occurrence: None)
  Receive Date: 20061102
  Receipt Date: 20061023
  Transmission Date: 20070319
  Serious: Yes (Hospitalization)
  Sender: FDA-Public Use
  Company Number: 2006129469

PATIENT
  Age: 67 Year
  Sex: Male
  Weight: 90 kg

DRUGS (6)
  1. FRAGMIN [Suspect]
     Indication: HIP SURGERY
     Dosage: 0.2 ML (1 IN 24 HR), SUBCUTANEOUS
     Route: 058
     Dates: start: 20060626, end: 20060629
  2. TRAMADOL HCL [Concomitant]
  3. KETOPROFEN [Concomitant]
  4. CLONAZEPAM [Concomitant]
  5. ATACAND [Concomitant]
  6. NEXIUM [Concomitant]

REACTIONS (3)
  - DRUG INEFFECTIVE [None]
  - PHLEBITIS [None]
  - POST PROCEDURAL COMPLICATION [None]
